FAERS Safety Report 4896129-4 (Version None)
Quarter: 2005Q4

REPORT INFORMATION
  Report Type: 
  Country: None (occurrence: None)
  Receive Date: 20051220
  Receipt Date: 20050819
  Transmission Date: 20060501
  Serious: Yes (Other)
  Sender: FDA-Public Use
  Company Number: US145474

PATIENT
  Age: 52 Year
  Sex: Female

DRUGS (7)
  1. ENBREL [Suspect]
     Indication: PSORIASIS
     Dosage: 50 MG, 2 IN 1 WEEKS, SC
     Route: 058
     Dates: start: 20050802, end: 20050802
  2. LEVOXYL [Concomitant]
  3. LOSARTAN POTASSIUM [Concomitant]
  4. CLOBETASOL [Concomitant]
  5. CETIRIZINE HYDROCHLORIDE [Concomitant]
  6. FLUCINOLONE ACETONIDE [Concomitant]
  7. TOCOPHEROL CONCENTRATE CAP [Concomitant]

REACTIONS (3)
  - CONDITION AGGRAVATED [None]
  - HYPERSENSITIVITY [None]
  - LATEX ALLERGY [None]
